FAERS Safety Report 6608041-0 (Version None)
Quarter: 2010Q1

REPORT INFORMATION
  Report Type: 
  Country: None (occurrence: None)
  Receive Date: 20100226
  Receipt Date: 20100226
  Transmission Date: 20100710
  Serious: No
  Sender: FDA-Public Use
  Company Number: None

PATIENT
  Age: 47 Year
  Sex: Male
  Weight: 127.0072 kg

DRUGS (10)
  1. FLUVOXAMINE MALEATE [Suspect]
     Dosage: 150MG PO
     Route: 048
  2. CLOZAPINE [Suspect]
     Dosage: 500 MG PO
     Route: 048
  3. METOPROLOL TARTRATE [Concomitant]
  4. DOCUSATE [Concomitant]
  5. DEPAKOTE [Concomitant]
  6. FLUPHENAZINE [Concomitant]
  7. DIPHENHYDRAMINE HCL [Concomitant]
  8. CLOZAPINE [Concomitant]
  9. DEPAKOTE [Concomitant]
  10. FLUVOXAMINE [Concomitant]

REACTIONS (1)
  - OEDEMA PERIPHERAL [None]
